FAERS Safety Report 15330014 (Version 1)
Quarter: 2018Q3

REPORT INFORMATION
  Report Type: Spontaneous
  Country: US (occurrence: US)
  Receive Date: 20180824
  Receipt Date: 20180824
  Transmission Date: 20181010
  Serious: No
  Sender: FDA-Public Use
  Company Number: None

PATIENT
  Age: 63 Year
  Sex: Female

DRUGS (1)
  1. TEMOZOLOMIDE CAP 5MG [Suspect]
     Active Substance: TEMOZOLOMIDE
     Route: 048
     Dates: start: 20180810, end: 20180811

REACTIONS (2)
  - Therapy change [None]
  - Swelling face [None]

NARRATIVE: CASE EVENT DATE: 20180810
